FAERS Safety Report 25274562 (Version 1)
Quarter: 2025Q2

REPORT INFORMATION
  Report Type: Spontaneous
  Country: CN (occurrence: CN)
  Receive Date: 20250506
  Receipt Date: 20250506
  Transmission Date: 20250716
  Serious: Yes (Hospitalization)
  Sender: PFIZER
  Company Number: CN-TAKEDA-2025TUS041132

PATIENT
  Age: 57 Year
  Sex: Female

DRUGS (4)
  1. BRENTUXIMAB VEDOTIN [Suspect]
     Active Substance: BRENTUXIMAB VEDOTIN
     Indication: Hodgkin^s disease
     Dosage: 80 MILLIGRAM, Q3WEEKS
     Route: 041
     Dates: start: 20250408, end: 20250408
  2. VINDESINE SULFATE [Suspect]
     Active Substance: VINDESINE SULFATE
     Indication: Hodgkin^s disease
     Dosage: 4 MILLIGRAM, 1/WEEK
     Route: 042
     Dates: start: 20250408, end: 20250408
  3. DACARBAZINE [Suspect]
     Active Substance: DACARBAZINE
     Indication: Hodgkin^s disease
     Dosage: 656 MILLIGRAM, QD
     Route: 041
     Dates: start: 20250408, end: 20250408
  4. DOXORUBICIN HYDROCHLORIDE [Suspect]
     Active Substance: DOXORUBICIN HYDROCHLORIDE
     Indication: Hodgkin^s disease
     Route: 041
     Dates: start: 20250408, end: 20250408

REACTIONS (1)
  - Myelosuppression [Recovering/Resolving]

NARRATIVE: CASE EVENT DATE: 20250423
